FAERS Safety Report 4418410-5 (Version None)
Quarter: 2004Q3

REPORT INFORMATION
  Report Type: 
  Country: None (occurrence: None)
  Receive Date: 20040809
  Receipt Date: 20040419
  Transmission Date: 20050211
  Serious: No
  Sender: FDA-Public Use
  Company Number: US-GLAXOSMITHKLINE-A0507547A

PATIENT
  Sex: Female

DRUGS (2)
  1. PAXIL CR [Suspect]
     Indication: DRUG USE FOR UNKNOWN INDICATION
     Route: 048
  2. LEVOXYL [Suspect]
     Indication: HORMONE REPLACEMENT THERAPY
     Route: 065

REACTIONS (4)
  - DRUG INTERACTION [None]
  - LOSS OF LIBIDO [None]
  - MOOD ALTERED [None]
  - THINKING ABNORMAL [None]
